FAERS Safety Report 9861878 (Version 2)
Quarter: 2014Q2

REPORT INFORMATION
  Report Type: Other
  Country: GB (occurrence: GB)
  Receive Date: 20140203
  Receipt Date: 20140425
  Transmission Date: 20141212
  Serious: Yes (Other)
  Sender: FDA-Public Use
  Company Number: GB-TARO PHARMACEUTICALS U.S.A., INC-2014SUN00137

PATIENT
  Sex: 0

DRUGS (8)
  1. WARFARIN [Suspect]
     Indication: PRODUCT USED FOR UNKNOWN INDICATION
     Dosage: UNK
     Route: 065
     Dates: start: 20131011
  2. TERBINAFINE [Interacting]
     Indication: PRODUCT USED FOR UNKNOWN INDICATION
     Dosage: UNK
     Route: 065
     Dates: start: 20131220
  3. ADCAL [Concomitant]
     Dosage: UNK
     Dates: start: 20131011
  4. ALENDRONIC ACID [Concomitant]
     Dosage: UNK
     Dates: start: 20131011
  5. AMOROLFINE [Concomitant]
     Dosage: UNK
     Dates: start: 20131011
  6. CETIRIZINE [Concomitant]
     Dosage: UNK
     Dates: start: 20131011
  7. MOMETASONE [Concomitant]
     Dosage: UNK
     Dates: start: 20131011
  8. VERAPAMIL HYDROCHLORIDE [Concomitant]
     Dosage: UNK
     Dates: start: 20140113

REACTIONS (3)
  - Malaise [Recovered/Resolved]
  - Drug interaction [Unknown]
  - International normalised ratio decreased [Recovered/Resolved]
